FAERS Safety Report 18217618 (Version 1)
Quarter: 2020Q3

REPORT INFORMATION
  Report Type: Spontaneous
  Country: TR (occurrence: TR)
  Receive Date: 20200901
  Receipt Date: 20200901
  Transmission Date: 20201103
  Serious: Yes (Hospitalization)
  Sender: FDA-Public Use
  Company Number: TR-CELLTRION-2020-TR-000116

PATIENT
  Age: 64 Year
  Sex: Male

DRUGS (2)
  1. PREGABALIN (NON?SPECIFIC) [Suspect]
     Active Substance: PREGABALIN
     Indication: NEURALGIA
     Dosage: 75 MG TWICE DAILY (1 YEAR), INCREASED TO 300 MG TWICE DAILY
  2. CORASPIN [Concomitant]
     Active Substance: ASPIRIN
     Dosage: 100 MG DAILY

REACTIONS (1)
  - Priapism [Recovered/Resolved]
